FAERS Safety Report 4822178-8 (Version None)
Quarter: 2005Q4

REPORT INFORMATION
  Report Type: 
  Country: None (occurrence: None)
  Receive Date: 20051103
  Receipt Date: 20051022
  Transmission Date: 20060501
  Serious: Yes (Other)
  Sender: FDA-Public Use
  Company Number: 2005145796

PATIENT
  Age: 53 Year
  Sex: Male
  Weight: 78.0187 kg

DRUGS (2)
  1. NEOSPORIN [Suspect]
     Indication: CHAPPED LIPS
     Dosage: A ^THIN LAYER^, TOPICAL
     Route: 061
     Dates: start: 20050820, end: 20051022
  2. LOTREL [Concomitant]

REACTIONS (1)
  - SWELLING FACE [None]
